FAERS Safety Report 4712971-4 (Version None)
Quarter: 2005Q3

REPORT INFORMATION
  Report Type: 
  Country: None (occurrence: None)
  Receive Date: 20050712
  Receipt Date: 20050712
  Transmission Date: 20060218
  Serious: Yes (Life-Threatening, Hospitalization)
  Sender: FDA-Public Use
  Company Number: None

PATIENT
  Age: 95 Year
  Sex: Male

DRUGS (9)
  1. METFORMIN  500MG [Suspect]
     Indication: DIABETES MELLITUS
     Dosage: 500 MG BID ORAL
     Route: 048
     Dates: start: 20040101, end: 20050405
  2. FUROSEMIDE [Concomitant]
  3. ATENOLOL [Concomitant]
  4. HYTRIN [Concomitant]
  5. ASPIRIN [Concomitant]
  6. ASCORBIC ACID [Concomitant]
  7. VITAMIN E [Concomitant]
  8. CALCIUM GLUCONATE [Concomitant]
  9. AMARYL [Concomitant]

REACTIONS (13)
  - ACIDOSIS [None]
  - ASTHENIA [None]
  - CONFUSIONAL STATE [None]
  - DEHYDRATION [None]
  - ELECTROCARDIOGRAM CHANGE [None]
  - FALL [None]
  - FLUID INTAKE REDUCED [None]
  - HAEMODIALYSIS [None]
  - HYPERKALAEMIA [None]
  - HYPOTENSION [None]
  - NAUSEA [None]
  - RENAL FAILURE [None]
  - VOMITING [None]
